FAERS Safety Report 17214741 (Version 2)
Quarter: 2020Q1

REPORT INFORMATION
  Report Type: Spontaneous
  Country: DE (occurrence: DE)
  Receive Date: 20191230
  Receipt Date: 20200108
  Transmission Date: 20200409
  Serious: Yes (Life-Threatening, Hospitalization, Disabling, Other)
  Sender: FDA-Public Use
  Company Number: DE-GILEAD-2019-0444700

PATIENT
  Sex: Male

DRUGS (4)
  1. ASS PROTECT [Concomitant]
     Route: 048
  2. RAMIPRIL HCS [Concomitant]
     Route: 048
  3. ATORVASTATIN [ATORVASTATIN CALCIUM] [Concomitant]
     Active Substance: ATORVASTATIN CALCIUM
     Dosage: UNK
     Route: 048
  4. BIKTARVY [Suspect]
     Active Substance: BICTEGRAVIR SODIUM\EMTRICITABINE\TENOFOVIR ALAFENAMIDE FUMARATE
     Indication: HIV INFECTION
     Dosage: 1 DOSAGE FORM, QD
     Route: 048

REACTIONS (5)
  - Cerebral infarction [Not Recovered/Not Resolved]
  - Dysphagia [Unknown]
  - Hemiparesis [Not Recovered/Not Resolved]
  - Gastrointestinal tube insertion [Unknown]
  - Carotid artery stenosis [Not Recovered/Not Resolved]

NARRATIVE: CASE EVENT DATE: 20191222
